FAERS Safety Report 6976744-4 (Version None)
Quarter: 2010Q3

REPORT INFORMATION
  Report Type: 
  Country: None (occurrence: None)
  Receive Date: 20100910
  Receipt Date: 20100908
  Transmission Date: 20110219
  Serious: Yes (Hospitalization)
  Sender: FDA-Public Use
  Company Number: A0880239A

PATIENT
  Age: 42 Year
  Sex: Male

DRUGS (1)
  1. ALLI [Suspect]
     Indication: WEIGHT LOSS DIET
     Dates: start: 20100801, end: 20100824

REACTIONS (3)
  - ABDOMINAL PAIN UPPER [None]
  - APPENDICECTOMY [None]
  - APPENDICITIS [None]
